FAERS Safety Report 12462096 (Version 1)
Quarter: 2016Q2

REPORT INFORMATION
  Report Type: Spontaneous
  Country: ES (occurrence: ES)
  Receive Date: 20160613
  Receipt Date: 20160613
  Transmission Date: 20160815
  Serious: Yes (Hospitalization)
  Sender: FDA-Public Use
  Company Number: ES-ABBVIE-16P-144-1650088-00

PATIENT
  Age: 1 Year
  Sex: Male
  Weight: 9 kg

DRUGS (3)
  1. KREON [Suspect]
     Active Substance: PANCRELIPASE
     Indication: CYSTIC FIBROSIS
     Dosage: 4 MEASURING SPOON PER MEAL
     Route: 065
     Dates: end: 201605
  2. KREON [Suspect]
     Active Substance: PANCRELIPASE
     Dosage: SENT HOME WITH EQUIVALENT DOSE OF KREON 25000 UNITS
     Route: 065
     Dates: start: 201606
  3. KREON [Suspect]
     Active Substance: PANCRELIPASE
     Dosage: 5000 UNITS CHANGED TO EQUIVALENT DOSE OF 10000 UNITS
     Route: 065
     Dates: start: 201605, end: 201606

REACTIONS (2)
  - Product supply issue [Unknown]
  - Respiratory tract infection [Recovered/Resolved]

NARRATIVE: CASE EVENT DATE: 201605
